FAERS Safety Report 25129616 (Version 1)
Quarter: 2025Q1

REPORT INFORMATION
  Report Type: Spontaneous
  Country: CA (occurrence: CA)
  Receive Date: 20250327
  Receipt Date: 20250327
  Transmission Date: 20250408
  Serious: Yes (Hospitalization)
  Sender: NOVARTIS
  Company Number: CA-002147023-NVSC2025CA049766

PATIENT
  Sex: Female

DRUGS (9)
  1. OCTREOTIDE [Suspect]
     Active Substance: OCTREOTIDE
     Indication: Hyperinsulinism
     Route: 042
  2. OCTREOTIDE [Suspect]
     Active Substance: OCTREOTIDE
     Dosage: UNK, Q3H
     Route: 058
  3. OCTREOTIDE [Suspect]
     Active Substance: OCTREOTIDE
  4. DEXTROSE [Suspect]
     Active Substance: DEXTROSE MONOHYDRATE
     Indication: Hypoglycaemia
     Route: 042
  5. DIAZOXIDE [Suspect]
     Active Substance: DIAZOXIDE
     Indication: Hyperinsulinism
     Dosage: 10 MG/KG, QD
     Route: 065
  6. DIAZOXIDE [Suspect]
     Active Substance: DIAZOXIDE
     Route: 065
  7. CEFOTAXIME SODIUM [Concomitant]
     Active Substance: CEFOTAXIME SODIUM
     Indication: Meningitis
     Route: 065
  8. GLUCAGON HYDROCHLORIDE [Concomitant]
     Active Substance: GLUCAGON HYDROCHLORIDE
     Indication: Hypoglycaemia
     Route: 065
  9. HYDROCHLOROTHIAZIDE [Concomitant]
     Active Substance: HYDROCHLOROTHIAZIDE
     Indication: Pulmonary hypertension
     Route: 065

REACTIONS (5)
  - Pericardial effusion [Recovered/Resolved]
  - Diarrhoea [Recovered/Resolved]
  - Patent ductus arteriosus [Recovered/Resolved]
  - Pulmonary hypertension [Recovered/Resolved]
  - Drug ineffective [Recovered/Resolved]
